FAERS Safety Report 17401759 (Version 2)
Quarter: 2020Q1

REPORT INFORMATION
  Report Type: Spontaneous
  Country: US (occurrence: US)
  Receive Date: 20200211
  Receipt Date: 20200317
  Transmission Date: 20200409
  Serious: No
  Sender: FDA-Public Use
  Company Number: US-GILEAD-2020-0450376

PATIENT
  Age: 66 Year
  Sex: Male
  Weight: 105.22 kg

DRUGS (9)
  1. TRUVADA [Concomitant]
     Active Substance: EMTRICITABINE\TENOFOVIR DISOPROXIL FUMARATE
     Dosage: 1 DOSAGE FORM (200/300)
     Route: 048
     Dates: start: 20200206
  2. FLAMASTAT [Concomitant]
     Indication: HYPERLIPIDAEMIA
     Dosage: 80 MG
     Route: 048
     Dates: start: 20190416
  3. TRUVADA [Concomitant]
     Active Substance: EMTRICITABINE\TENOFOVIR DISOPROXIL FUMARATE
     Indication: HIGH RISK SEXUAL BEHAVIOUR
     Dosage: 1 DOSAGE FORM (200/300)
     Route: 048
     Dates: start: 20190416, end: 20191125
  4. TAMSULOSIN HCL [Concomitant]
     Active Substance: TAMSULOSIN HYDROCHLORIDE
     Indication: BENIGN PROSTATIC HYPERPLASIA
     Dosage: 0.4 MG
     Route: 048
     Dates: start: 20150416
  5. FENOFIBRATE. [Concomitant]
     Active Substance: FENOFIBRATE
     Indication: HYPERLIPIDAEMIA
     Dosage: 145 MG
     Route: 048
     Dates: start: 20190416
  6. DESCOVY [Suspect]
     Active Substance: EMTRICITABINE\TENOFOVIR ALAFENAMIDE FUMARATE
     Indication: PROPHYLAXIS AGAINST HIV INFECTION
     Dosage: 1 DOSAGE FORM (200/25)
     Route: 048
     Dates: start: 20191126, end: 20200205
  7. DESCOVY [Suspect]
     Active Substance: EMTRICITABINE\TENOFOVIR ALAFENAMIDE FUMARATE
     Indication: HIGH RISK SEXUAL BEHAVIOUR
  8. VALSARTAN + HCTZ [Concomitant]
     Active Substance: HYDROCHLOROTHIAZIDE\VALSARTAN
     Indication: ESSENTIAL HYPERTENSION
     Dosage: 160/125
     Route: 048
     Dates: start: 20190416
  9. XARELTO [Concomitant]
     Active Substance: RIVAROXABAN
     Indication: EMBOLISM VENOUS
     Dosage: 10 MG
     Route: 048
     Dates: start: 20190416

REACTIONS (2)
  - Muscle tightness [Unknown]
  - Headache [Recovered/Resolved]

NARRATIVE: CASE EVENT DATE: 20191126
